FAERS Safety Report 9259313 (Version 2)
Quarter: 2013Q3

REPORT INFORMATION
  Report Type: Spontaneous
  Country: DE (occurrence: DE)
  Receive Date: 20130427
  Receipt Date: 20130802
  Transmission Date: 20140515
  Serious: Yes (Other)
  Sender: FDA-Public Use
  Company Number: DE-ROCHE-1218996

PATIENT
  Sex: Female
  Weight: 112 kg

DRUGS (1)
  1. HERCEPTIN [Suspect]
     Indication: BREAST CANCER
     Route: 042
     Dates: start: 20120424, end: 20130409

REACTIONS (5)
  - Suicidal ideation [Unknown]
  - Asthenia [Recovering/Resolving]
  - Nail disorder [Unknown]
  - Pain [Not Recovered/Not Resolved]
  - Paraesthesia [Unknown]
